FAERS Safety Report 24352300 (Version 2)
Quarter: 2024Q3

REPORT INFORMATION
  Report Type: Spontaneous
  Country: TW (occurrence: TW)
  Receive Date: 20240923
  Receipt Date: 20240927
  Transmission Date: 20241016
  Serious: Yes (Life-Threatening, Hospitalization, Other)
  Sender: SANOFI AVENTIS
  Company Number: TW-MLMSERVICE-20240912-PI190214-00249-1

PATIENT
  Age: 52 Year
  Sex: Female

DRUGS (2)
  1. OXALIPLATIN [Suspect]
     Active Substance: OXALIPLATIN
     Indication: Metastases to peritoneum
     Dosage: UNK UNK, QCY (HYPERTHERMIC INTRAPERITONEAL CHEMOTHERAPY)
     Route: 033
  2. OXALIPLATIN [Suspect]
     Active Substance: OXALIPLATIN
     Indication: Colorectal cancer stage III
     Dosage: UNK
     Route: 033

REACTIONS (11)
  - Obstructive shock [Recovered/Resolved]
  - Abdominal distension [Recovered/Resolved]
  - Dyschezia [Recovered/Resolved]
  - Decreased appetite [Recovered/Resolved]
  - Asthenia [Recovered/Resolved]
  - Pneumothorax [Recovered/Resolved]
  - Bradycardia [Recovered/Resolved]
  - Hypotension [Recovered/Resolved]
  - Circulatory collapse [Recovered/Resolved]
  - Abdominal compartment syndrome [Recovered/Resolved]
  - Metabolic acidosis [Recovered/Resolved]
